FAERS Safety Report 4430184-0 (Version None)
Quarter: 2004Q3

REPORT INFORMATION
  Report Type: 
  Country: None (occurrence: None)
  Receive Date: 20040817
  Receipt Date: 20040804
  Transmission Date: 20050211
  Serious: Yes (Hospitalization)
  Sender: FDA-Public Use
  Company Number: 2004053142

PATIENT
  Age: 24 Year
  Sex: Male

DRUGS (2)
  1. ZITHROMAX [Suspect]
     Indication: ACUTE TONSILLITIS
     Dosage: 500 MG (250 MG, 2 IN 1 D), ORAL
     Route: 048
     Dates: start: 20040622, end: 20040624
  2. PREDNISOLONE [Suspect]
     Indication: ACUTE TONSILLITIS
     Dosage: ORAL
     Route: 048
     Dates: start: 20040622, end: 20040624

REACTIONS (5)
  - CONDITION AGGRAVATED [None]
  - HERPANGINA [None]
  - SWOLLEN TONGUE [None]
  - TONGUE ULCERATION [None]
  - TONSILLITIS [None]
